FAERS Safety Report 15168240 (Version 1)
Quarter: 2018Q3

REPORT INFORMATION
  Report Type: Spontaneous
  Country: ES (occurrence: ES)
  Receive Date: 20180719
  Receipt Date: 20180719
  Transmission Date: 20181010
  Serious: Yes (Other)
  Sender: FDA-Public Use
  Company Number: ES-JAZZ-2018-ES-010966

PATIENT
  Age: 6 Year
  Sex: Male
  Weight: 19.48 kg

DRUGS (5)
  1. ERWINASE [Suspect]
     Active Substance: ASPARAGINASE ERWINIA CHRYSANTHEMI
     Indication: ACUTE LYMPHOCYTIC LEUKAEMIA
     Dosage: 15000 IU/3 DAY
     Route: 030
     Dates: start: 20170313, end: 20170331
  2. METHOTREXATE. [Suspect]
     Active Substance: METHOTREXATE
     Indication: ACUTE LYMPHOCYTIC LEUKAEMIA
     Dosage: 12.5 MG/1 WEEK
     Route: 048
     Dates: start: 20170214, end: 20170406
  3. MERCAPTOPURINA [Suspect]
     Active Substance: MERCAPTOPURINE
     Indication: ACUTE LYMPHOCYTIC LEUKAEMIA
     Dosage: 18 MG,1 DAY
     Route: 048
     Dates: start: 20170214, end: 20170406
  4. ACICLOVIR [Concomitant]
     Active Substance: ACYCLOVIR
     Indication: PROPHYLAXIS
     Dosage: 176 MG/8HR
     Route: 048
     Dates: start: 20160628
  5. SEPTRIN PAEDIATRIC [Concomitant]
     Active Substance: SULFAMETHOXAZOLE\TRIMETHOPRIM
     Indication: PROPHYLAXIS
     Dosage: 2 ML/12 HOUR, 8MG/40MG/ML ORAL SUSPENSION, 1 VIAL OF 100 ML
     Route: 048
     Dates: start: 20160628

REACTIONS (2)
  - Pancytopenia [Recovered/Resolved]
  - Epistaxis [Recovered/Resolved]

NARRATIVE: CASE EVENT DATE: 20170406
